FAERS Safety Report 25462747 (Version 2)
Quarter: 2025Q3

REPORT INFORMATION
  Report Type: Spontaneous
  Country: US (occurrence: US)
  Receive Date: 20250620
  Receipt Date: 20250806
  Transmission Date: 20251021
  Serious: No
  Sender: PFIZER
  Company Number: US-PFIZER INC-PV202500073332

PATIENT
  Age: 61 Year
  Sex: Female

DRUGS (1)
  1. IBRANCE [Suspect]
     Active Substance: PALBOCICLIB

REACTIONS (5)
  - Cough [Unknown]
  - Pain in extremity [Unknown]
  - Hypoaesthesia [Unknown]
  - Red blood cell count decreased [Unknown]
  - White blood cell count decreased [Unknown]
